FAERS Safety Report 9563437 (Version 1)
Quarter: 2013Q1

REPORT INFORMATION
  Report Type: Spontaneous
  Country: US (occurrence: None)
  Receive Date: 20121214
  Receipt Date: 20121214
  Transmission Date: 20140127
  Serious: Yes (Hospitalization)
  Sender: FDA-Public Use
  Company Number: 1201USA03777

PATIENT
  Age: 17 Year
  Sex: Female

DRUGS (3)
  1. JANUVIA [Suspect]
     Indication: TYPE 2 DIABETES MELLITUS
     Route: 048
  2. LEVEMIR (INSULIN DETEMIR) [Concomitant]
  3. LANTUS (INSULIN GLARGINE) [Concomitant]

REACTIONS (2)
  - Drug administered to patient of inappropriate age [None]
  - Hypoglycaemia [None]
